FAERS Safety Report 4734870-4 (Version None)
Quarter: 2005Q3

REPORT INFORMATION
  Report Type: 
  Country: None (occurrence: None)
  Receive Date: 20050804
  Receipt Date: 20050727
  Transmission Date: 20060218
  Serious: Yes (Hospitalization)
  Sender: FDA-Public Use
  Company Number: PHBS2005FI10976

PATIENT
  Age: 22 Year
  Sex: Female

DRUGS (8)
  1. SANDIMMUNE [Suspect]
     Indication: COLITIS ULCERATIVE
     Dosage: 200 MG/D
     Route: 042
     Dates: start: 20050701, end: 20050710
  2. AZAMUN [Suspect]
     Indication: COLITIS ULCERATIVE
     Dosage: 125 MG/D
     Route: 048
     Dates: start: 20020101, end: 20050711
  3. SOLU-MEDROL [Concomitant]
     Dosage: 140 MG/D
     Route: 042
  4. PREDNISON [Concomitant]
     Dosage: 30 MG/D
  5. ASACOL [Concomitant]
     Indication: COLITIS ULCERATIVE
     Dosage: 2400 MG/D
  6. FOLVITE [Concomitant]
     Dosage: 1 MG/D
  7. KALCIPOS-D [Concomitant]
     Dosage: 1 DF, BID
     Route: 048
  8. TRIKOZOL [Concomitant]
     Dosage: 1200 MG/D

REACTIONS (8)
  - COLECTOMY [None]
  - CYTOMEGALOVIRUS COLITIS [None]
  - DRUG EXPOSURE DURING PREGNANCY [None]
  - DRUG INEFFECTIVE [None]
  - LEUKOPENIA [None]
  - LYMPHOCYTE COUNT DECREASED [None]
  - NEUTROPENIA [None]
  - SEPSIS [None]
